FAERS Safety Report 15026817 (Version 1)
Quarter: 2018Q2

REPORT INFORMATION
  Report Type: Spontaneous
  Country: NL (occurrence: NL)
  Receive Date: 20180619
  Receipt Date: 20180619
  Transmission Date: 20180711
  Serious: Yes (Other)
  Sender: FDA-Public Use
  Company Number: NL-TEVA-2018-NL-908056

PATIENT
  Age: 19 Year
  Sex: Female
  Weight: 53 kg

DRUGS (3)
  1. ISOTRETINOINE CAPSULE ZACHT 20MG CAPSULE, 20 MG (MILLIGRAM) [Suspect]
     Active Substance: ISOTRETINOIN
     Indication: ACNE
     Dosage: 2D1
     Dates: start: 20180116
  2. MESALAZINE SCHUIM RECTAAL 1G/DO 14DO [Concomitant]
     Dosage: 1 GRAM DAILY; 1D1
     Route: 054
  3. BETAMETHASON CREME 1 MG/G [Concomitant]
     Dosage: 2D1 ZN
     Route: 065

REACTIONS (2)
  - Inflammatory bowel disease [Not Recovered/Not Resolved]
  - Condition aggravated [Not Recovered/Not Resolved]

NARRATIVE: CASE EVENT DATE: 20180118
